FAERS Safety Report 19790165 (Version 1)
Quarter: 2021Q3

REPORT INFORMATION
  Report Type: Other
  Country: US (occurrence: US)
  Receive Date: 20210906
  Receipt Date: 20210906
  Transmission Date: 20211014
  Serious: Yes (Hospitalization, Other)
  Sender: FDA-Public Use
  Company Number: US-INTERCEPT-PM2021001904

PATIENT
  Age: 75 Year
  Sex: Female
  Weight: 55.2 kg

DRUGS (9)
  1. HYDROXYZINE [Concomitant]
     Active Substance: HYDROXYZINE HYDROCHLORIDE
     Indication: PRURITUS
     Dosage: 25 MILLIGRAM, Q6H
     Route: 048
  2. UDCA [Concomitant]
     Active Substance: URSODIOL
     Dosage: UNK, QD
  3. OCALIVA [Suspect]
     Active Substance: OBETICHOLIC ACID
     Dosage: 5 MILLIGRAM, QD
     Route: 048
     Dates: start: 2021, end: 202107
  4. PANTOPRAZOLE [Concomitant]
     Active Substance: PANTOPRAZOLE
     Dosage: UNK UNK, QD
     Route: 048
  5. OCALIVA [Suspect]
     Active Substance: OBETICHOLIC ACID
     Indication: PRIMARY BILIARY CHOLANGITIS
     Dosage: 5 MILLIGRAM, QD
     Route: 048
     Dates: start: 20210212, end: 20210505
  6. SIMVASTATIN. [Concomitant]
     Active Substance: SIMVASTATIN
     Dosage: 20 MILLIGRAM, QD (AT BED TIME)
     Route: 048
  7. SPIRONOLACTONE. [Concomitant]
     Active Substance: SPIRONOLACTONE
     Dosage: UNK UNK, BID
     Route: 048
  8. METFORMIN [Concomitant]
     Active Substance: METFORMIN HYDROCHLORIDE
     Dosage: 500 MILLIGRAM, BID
     Route: 048
  9. FUROSEMIDE. [Concomitant]
     Active Substance: FUROSEMIDE
     Dosage: 40 MILLIGRAM, QD
     Route: 048

REACTIONS (16)
  - Loss of consciousness [Unknown]
  - Hepatic cirrhosis [Unknown]
  - Flank pain [Recovered/Resolved]
  - Drug screen positive [Unknown]
  - Anaemia of chronic disease [Unknown]
  - Tremor [Unknown]
  - Generalised tonic-clonic seizure [Unknown]
  - Tachycardia [Unknown]
  - Fatigue [Unknown]
  - Ascites [Unknown]
  - Splenic cyst [Unknown]
  - Renal cyst [Unknown]
  - Splenomegaly [Unknown]
  - Pancreatic cyst [Unknown]
  - Intraductal papillary mucinous neoplasm [Unknown]
  - Pain [Unknown]

NARRATIVE: CASE EVENT DATE: 2021
